FAERS Safety Report 7785005-5 (Version None)
Quarter: 2011Q3

REPORT INFORMATION
  Report Type: 
  Country: None (occurrence: None)
  Receive Date: 20110928
  Receipt Date: 20110926
  Transmission Date: 20111222
  Serious: Yes (Hospitalization)
  Sender: FDA-Public Use
  Company Number: PHHY2011NL85441

PATIENT
  Sex: Female

DRUGS (3)
  1. ZOMETA [Suspect]
     Dosage: 4 MG/ 5 ML ONCE PER 28 DAYS
     Dates: start: 20110829
  2. ZOMETA [Suspect]
     Indication: BREAST CANCER METASTATIC
     Dosage: 4 MG/5 ML ONCE PER 28 DAYS
     Dates: start: 20110630
  3. ZOMETA [Suspect]
     Dosage: 4 MG/ 5 ML ONCE PER 28 DAYS
     Dates: start: 20110926

REACTIONS (2)
  - DEVICE RELATED INFECTION [None]
  - PYREXIA [None]
